FAERS Safety Report 4870416-8 (Version None)
Quarter: 2006Q1

REPORT INFORMATION
  Report Type: 
  Country: None (occurrence: None)
  Receive Date: 20060103
  Receipt Date: 20041203
  Transmission Date: 20060701
  Serious: No
  Sender: FDA-Public Use
  Company Number: US-BRISTOL-MYERS SQUIBB COMPANY-12783692

PATIENT
  Age: 90 Year
  Sex: Female

DRUGS (4)
  1. DESYREL [Suspect]
     Indication: PSEUDODEMENTIA
  2. DESYREL [Suspect]
     Indication: SLEEP DISORDER
  3. TRAZODONE HCL [Suspect]
     Indication: PSEUDODEMENTIA
  4. TRAZODONE HCL [Suspect]
     Indication: SLEEP DISORDER

REACTIONS (1)
  - DRUG INEFFECTIVE [None]
